FAERS Safety Report 13807521 (Version 1)
Quarter: 2017Q3

REPORT INFORMATION
  Report Type: Spontaneous
  Country: MY (occurrence: MY)
  Receive Date: 20170728
  Receipt Date: 20170728
  Transmission Date: 20171127
  Serious: Yes (Other)
  Sender: FDA-Public Use
  Company Number: MY-PFIZER INC-2017322258

PATIENT
  Age: 39 Year
  Sex: Male

DRUGS (1)
  1. SALAZOPYRIN EN [Suspect]
     Active Substance: SULFASALAZINE
     Indication: PSORIASIS
     Route: 048

REACTIONS (3)
  - Rash maculo-papular [Recovering/Resolving]
  - Dermatitis bullous [Recovering/Resolving]
  - Product use in unapproved indication [Unknown]
